FAERS Safety Report 5959252-9 (Version None)
Quarter: 2008Q4

REPORT INFORMATION
  Report Type: 
  Country: None (occurrence: None)
  Receive Date: 20081117
  Receipt Date: 20081103
  Transmission Date: 20090506
  Serious: Yes (Hospitalization)
  Sender: FDA-Public Use
  Company Number: DSA_32616_2008

PATIENT
  Age: 61 Year
  Sex: Male

DRUGS (1)
  1. ENALAPRIL MALEATE [Suspect]
     Indication: HYPERTENSION
     Dosage: (20 MG QD ORAL)
     Route: 048
     Dates: start: 20070618, end: 20070621

REACTIONS (1)
  - RASH MACULO-PAPULAR [None]
